FAERS Safety Report 23996411 (Version 1)
Quarter: 2024Q2

REPORT INFORMATION
  Report Type: Spontaneous
  Country: US (occurrence: US)
  Receive Date: 20240620
  Receipt Date: 20240620
  Transmission Date: 20240716
  Serious: No
  Sender: FDA-Public Use
  Company Number: US-GE HEALTHCARE-2024CSU006331

PATIENT
  Sex: Female

DRUGS (1)
  1. CERIANNA [Suspect]
     Active Substance: FLUOROESTRADIOL F-18
     Indication: Positron emission tomogram
     Dosage: UNK, TOTAL
     Route: 065
     Dates: start: 20240516, end: 20240516

REACTIONS (2)
  - False negative investigation result [Recovered/Resolved]
  - No adverse event [Recovered/Resolved]

NARRATIVE: CASE EVENT DATE: 20240516
